FAERS Safety Report 5451258-1 (Version None)
Quarter: 2007Q3

REPORT INFORMATION
  Report Type: 
  Country: None (occurrence: None)
  Receive Date: 20070911
  Receipt Date: 20070911
  Transmission Date: 20080115
  Serious: Yes (Hospitalization)
  Sender: FDA-Public Use
  Company Number: None

PATIENT
  Sex: Female
  Weight: 56 kg

DRUGS (2)
  1. CARBOPLATIN [Suspect]
     Indication: BREAST CANCER METASTATIC
     Dosage: AUC 2 (MG*MIN/ML) Q-WEEK IV
     Route: 042
     Dates: start: 20070827, end: 20070904
  2. CETUXIMAB [Suspect]
     Indication: BREAST CANCER METASTATIC
     Dosage: 250 MG/M2 Q-WEEK IV
     Route: 042
     Dates: start: 20070827, end: 20070904

REACTIONS (2)
  - CONDITION AGGRAVATED [None]
  - COUGH [None]
